FAERS Safety Report 5238998-4 (Version None)
Quarter: 2007Q1

REPORT INFORMATION
  Report Type: 
  Country: None (occurrence: None)
  Receive Date: 20061208
  Receipt Date: 20050617
  Transmission Date: 20070707
  Serious: Yes (Other)
  Sender: FDA-Public Use
  Company Number: 2005UW09278

PATIENT
  Age: 82 Year
  Sex: Male
  Weight: 58.967 kg

DRUGS (1)
  1. CRESTOR [Suspect]
     Indication: BLOOD CHOLESTEROL INCREASED
     Dosage: 10 MG ONCE PO
     Route: 048
     Dates: start: 20050616, end: 20050617

REACTIONS (2)
  - ASTHENIA [None]
  - DYSURIA [None]
